FAERS Safety Report 6501300-1 (Version None)
Quarter: 2009Q4

REPORT INFORMATION
  Report Type: 
  Country: None (occurrence: None)
  Receive Date: 20091216
  Receipt Date: 20091207
  Transmission Date: 20100525
  Serious: Yes (Life-Threatening)
  Sender: FDA-Public Use
  Company Number: US-BAYER-200917383BCC

PATIENT
  Age: 19 Year
  Sex: Male
  Weight: 82 kg

DRUGS (1)
  1. ALKA-SELTZER LIQUID GELS DAY/NIGHT COMBO [Suspect]
     Indication: NASOPHARYNGITIS
     Dosage: TOTAL DAILY DOSE: 2 DF  UNIT DOSE: 1 DF
     Route: 048
     Dates: start: 20091126

REACTIONS (2)
  - FATIGUE [None]
  - SOMNOLENCE [None]
